FAERS Safety Report 11026879 (Version 2)
Quarter: 2015Q2

REPORT INFORMATION
  Report Type: Spontaneous
  Country: US (occurrence: US)
  Receive Date: 20150414
  Receipt Date: 20150610
  Transmission Date: 20150821
  Serious: Yes (Hospitalization)
  Sender: FDA-Public Use
  Company Number: US-BAYER-2015-117870

PATIENT
  Age: 30 Year
  Sex: Female
  Weight: 74.83 kg

DRUGS (1)
  1. MIRENA [Suspect]
     Active Substance: LEVONORGESTREL
     Dosage: 20 MCG/24HR, CONT
     Route: 015
     Dates: start: 20130710, end: 20130819

REACTIONS (5)
  - Injury [None]
  - Uterine perforation [None]
  - Medical device pain [None]
  - Post procedural discomfort [None]
  - Infection [None]

NARRATIVE: CASE EVENT DATE: 20130710
